FAERS Safety Report 25450653 (Version 1)
Quarter: 2025Q2

REPORT INFORMATION
  Report Type: Spontaneous
  Country: CA (occurrence: CA)
  Receive Date: 20250618
  Receipt Date: 20250618
  Transmission Date: 20250717
  Serious: Yes (Death, Other)
  Sender: ALEXION PHARMACEUTICALS
  Company Number: CA-ASTRAZENECA-202506GLO011271CA

PATIENT
  Age: 51 Year

DRUGS (3)
  1. OSIMERTINIB [Suspect]
     Active Substance: OSIMERTINIB
     Indication: Lung adenocarcinoma
     Dosage: 40 MILLIGRAM, QD
     Route: 065
  2. GEFITINIB [Suspect]
     Active Substance: GEFITINIB
     Indication: Non-small cell lung cancer
     Route: 065
  3. BRIGATINIB [Suspect]
     Active Substance: BRIGATINIB
     Indication: Lung adenocarcinoma
     Route: 065

REACTIONS (6)
  - Malignant neoplasm progression [Fatal]
  - Drug resistance [Fatal]
  - Acquired gene mutation [Fatal]
  - Metastases to adrenals [Fatal]
  - Pneumonitis [Fatal]
  - Off label use [Fatal]
